FAERS Safety Report 6493256-5 (Version None)
Quarter: 2009Q4

REPORT INFORMATION
  Report Type: 
  Country: None (occurrence: None)
  Receive Date: 20091214
  Receipt Date: 20091204
  Transmission Date: 20100525
  Serious: Yes (Other)
  Sender: FDA-Public Use
  Company Number: GB-ASTRAZENECA-2009SE30444

PATIENT

DRUGS (4)
  1. PROPOFOL [Suspect]
     Indication: ANAESTHESIA
  2. HALOTHANE [Suspect]
     Indication: ANAESTHESIA
     Route: 055
  3. FENTANYL [Suspect]
     Indication: ANAESTHESIA
     Route: 055
  4. SUCCINYLCHOLINE CHLORIDE [Suspect]
     Indication: MUSCLE RELAXANT THERAPY
     Route: 065

REACTIONS (2)
  - MUSCLE RIGIDITY [None]
  - MUSCLE SPASMS [None]
